FAERS Safety Report 10902155 (Version 2)
Quarter: 2017Q1

REPORT INFORMATION
  Report Type: Spontaneous
  Country: IE (occurrence: IE)
  Receive Date: 20150310
  Receipt Date: 20170207
  Transmission Date: 20170428
  Serious: Yes (Death)
  Sender: FDA-Public Use
  Company Number: IE-PFIZER INC-2015084281

PATIENT
  Age: 55 Year
  Sex: Female

DRUGS (10)
  1. STEMETIL /00013301/ [Concomitant]
     Active Substance: PROCHLORPERAZINE
     Indication: NAUSEA
     Dosage: 5 MG, 3X/DAY
     Route: 048
  2. XANAX [Suspect]
     Active Substance: ALPRAZOLAM
     Indication: ANXIETY DISORDER
     Dosage: 1 MG, 4X/DAY
     Route: 048
     Dates: start: 2010
  3. XANAX [Interacting]
     Active Substance: ALPRAZOLAM
     Indication: ANOREXIA NERVOSA
  4. DALMANE [Interacting]
     Active Substance: FLURAZEPAM HYDROCHLORIDE
     Indication: ANOREXIA NERVOSA
     Dosage: 30 MG, 1X/DAY AT NIGHT
     Route: 048
     Dates: start: 2010
  5. PARAMOL /00138301/ [Interacting]
     Active Substance: ACETAMINOPHEN\DIHYDROCODEINE BITARTRATE
     Indication: ANOREXIA NERVOSA
  6. VALIUM [Interacting]
     Active Substance: DIAZEPAM
     Indication: ANOREXIA NERVOSA
  7. DALMANE [Interacting]
     Active Substance: FLURAZEPAM HYDROCHLORIDE
     Indication: ANXIETY DISORDER
  8. VALIUM [Interacting]
     Active Substance: DIAZEPAM
     Indication: ANXIETY DISORDER
     Dosage: 10 MG, 4X/DAY
     Route: 048
     Dates: start: 2010
  9. PARAMOL /00138301/ [Interacting]
     Active Substance: ACETAMINOPHEN\DIHYDROCODEINE BITARTRATE
     Indication: ANXIETY DISORDER
     Dosage: 2 DF, 4X/DAY
     Route: 048
     Dates: start: 2010
  10. STEMETIL /00013301/ [Concomitant]
     Active Substance: PROCHLORPERAZINE
     Indication: VOMITING

REACTIONS (5)
  - Drug interaction [Fatal]
  - Depressed level of consciousness [Fatal]
  - Vomiting [None]
  - Nausea [None]
  - Cachexia [None]
